FAERS Safety Report 15598623 (Version 1)
Quarter: 2018Q4

REPORT INFORMATION
  Report Type: Report from Study
  Country: US (occurrence: US)
  Receive Date: 20181108
  Receipt Date: 20181108
  Transmission Date: 20190205
  Serious: Yes (Hospitalization)
  Sender: FDA-Public Use
  Company Number: US-GILEAD-2018-0363279

PATIENT
  Age: 78 Year
  Sex: Female

DRUGS (6)
  1. BACTRIM [Concomitant]
     Active Substance: SULFAMETHOXAZOLE\TRIMETHOPRIM
     Dosage: 800-160MG, BY MOUTH, TWICE DAILY ON MONDYAY, WEDNESDAY AND FRIDAY
     Dates: start: 20180905
  2. IDELALISIB [Suspect]
     Active Substance: IDELALISIB
     Indication: MALIGNANT LYMPHOID NEOPLASM
  3. IDELALISIB [Suspect]
     Active Substance: IDELALISIB
     Indication: LEUKAEMIA
  4. PRILOSEC [Concomitant]
     Active Substance: OMEPRAZOLE MAGNESIUM
  5. IDELALISIB [Suspect]
     Active Substance: IDELALISIB
     Indication: CHRONIC LYMPHOCYTIC LEUKAEMIA
     Dosage: 150 MG, BID
     Route: 048
     Dates: start: 20180905, end: 20181018
  6. ZANTAC [Concomitant]
     Active Substance: RANITIDINE HYDROCHLORIDE
     Dates: start: 201809, end: 20180925

REACTIONS (22)
  - Dysstasia [Not Recovered/Not Resolved]
  - Gait inability [Unknown]
  - Fatigue [Not Recovered/Not Resolved]
  - Weight decreased [Not Recovered/Not Resolved]
  - Gastrooesophageal reflux disease [Not Recovered/Not Resolved]
  - Fatigue [Unknown]
  - Pain in extremity [Unknown]
  - Dyspepsia [Not Recovered/Not Resolved]
  - Decreased appetite [Not Recovered/Not Resolved]
  - Dysgeusia [Not Recovered/Not Resolved]
  - Night sweats [Recovering/Resolving]
  - Aphonia [Not Recovered/Not Resolved]
  - Cough [Not Recovered/Not Resolved]
  - Malaise [Unknown]
  - Decreased appetite [Unknown]
  - Retching [Unknown]
  - Decreased appetite [Not Recovered/Not Resolved]
  - Pain in extremity [Not Recovered/Not Resolved]
  - Ear congestion [Unknown]
  - Vomiting [Unknown]
  - Retching [Not Recovered/Not Resolved]
  - Ear discomfort [Unknown]

NARRATIVE: CASE EVENT DATE: 201809
